FAERS Safety Report 5337339-1 (Version None)
Quarter: 2007Q2

REPORT INFORMATION
  Report Type: 
  Country: None (occurrence: None)
  Receive Date: 20070529
  Receipt Date: 20070523
  Transmission Date: 20071010
  Serious: Yes (Disabling, Other)
  Sender: FDA-Public Use
  Company Number: CA-SHR-CA-2007-017877

PATIENT
  Age: 35 Year
  Sex: Female

DRUGS (4)
  1. YASMIN [Suspect]
     Dosage: 1 TAB(S), 1X/DAY
     Route: 048
     Dates: start: 20070426, end: 20070501
  2. ALESSE [Concomitant]
     Dates: end: 20070501
  3. FLOVENT [Concomitant]
     Dosage: SOME DAYS OF THE YEAR
  4. SALBUTAMOL [Concomitant]
     Dosage: SOME DAYS OF THE YEAR

REACTIONS (7)
  - FATIGUE [None]
  - INFLAMMATION [None]
  - JOINT STIFFNESS [None]
  - JOINT SWELLING [None]
  - MIGRAINE [None]
  - OEDEMA PERIPHERAL [None]
  - VOMITING [None]
